FAERS Safety Report 9319172 (Version 1)
Quarter: 2013Q2

REPORT INFORMATION
  Report Type: Spontaneous
  Country: US (occurrence: US)
  Receive Date: 20130530
  Receipt Date: 20130530
  Transmission Date: 20140414
  Serious: No
  Sender: FDA-Public Use
  Company Number: US-TEVA-408899USA

PATIENT
  Sex: Female

DRUGS (1)
  1. NUVIGIL [Suspect]
     Indication: SLEEP APNOEA SYNDROME
     Dosage: 500 MILLIGRAM DAILY;
     Route: 048
     Dates: start: 201207

REACTIONS (3)
  - Headache [Unknown]
  - Drug ineffective [Unknown]
  - Insomnia [Unknown]
